FAERS Safety Report 20789395 (Version 1)
Quarter: 2022Q2

REPORT INFORMATION
  Report Type: Spontaneous
  Country: US (occurrence: None)
  Receive Date: 20220504
  Receipt Date: 20220504
  Transmission Date: 20220721
  Serious: Yes (Hospitalization)
  Sender: FDA-Public Use
  Company Number: None

PATIENT
  Sex: Male

DRUGS (1)
  1. FINASTERIDE [Suspect]
     Active Substance: FINASTERIDE
     Indication: Product used for unknown indication
     Dosage: 5 MG DAILY BY MOUTH?
     Route: 048
     Dates: start: 202104

REACTIONS (4)
  - Urethral cancer metastatic [None]
  - Pulmonary mass [None]
  - Hospice care [None]
  - Impaired healing [None]
